FAERS Safety Report 6531923-5 (Version None)
Quarter: 2010Q1

REPORT INFORMATION
  Report Type: 
  Country: None (occurrence: None)
  Receive Date: 20100108
  Receipt Date: 20100104
  Transmission Date: 20100710
  Serious: Yes (Death)
  Sender: FDA-Public Use
  Company Number: US-JNJFOC-20090500590

PATIENT
  Sex: Female
  Weight: 59.42 kg

DRUGS (11)
  1. FENTANYL [Suspect]
     Indication: PAIN
     Route: 062
  2. FENTANYL [Suspect]
     Route: 062
  3. FENTANYL [Suspect]
     Dosage: ONE 100 UG/HR PATCH AND ONE 25 UG/HR PATCH
     Route: 062
  4. ULTRAM [Suspect]
     Indication: PAIN
     Route: 048
  5. PREDNISONE [Concomitant]
  6. VICODIN [Concomitant]
  7. AMBIEN [Concomitant]
     Indication: SLEEP DISORDER
  8. PROTONIX [Concomitant]
  9. ATIVAN [Concomitant]
  10. CYTOXAN [Concomitant]
  11. KEPPRA [Concomitant]

REACTIONS (1)
  - NARCOTIC INTOXICATION [None]
